FAERS Safety Report 17881312 (Version 4)
Quarter: 2020Q3

REPORT INFORMATION
  Report Type: Spontaneous
  Country: CA (occurrence: CA)
  Receive Date: 20200610
  Receipt Date: 20200824
  Transmission Date: 20201103
  Serious: Yes (Other)
  Sender: FDA-Public Use
  Company Number: CA-PFIZER INC-2020197694

PATIENT
  Age: 70 Year
  Sex: Female

DRUGS (4)
  1. LEFLUNOMIDE. [Concomitant]
     Active Substance: LEFLUNOMIDE
     Dosage: 20 MG, 1X/DAY
  2. XELJANZ [Suspect]
     Active Substance: TOFACITINIB CITRATE
     Indication: PSORIATIC ARTHROPATHY
     Dosage: 5 MG, 2X/DAY
     Route: 048
     Dates: start: 20200510, end: 20200519
  3. XELJANZ [Suspect]
     Active Substance: TOFACITINIB CITRATE
     Dosage: 5 MG, 2X/DAY
     Route: 048
     Dates: start: 2020
  4. CYMBALTA [Concomitant]
     Active Substance: DULOXETINE HYDROCHLORIDE
     Dosage: UNK

REACTIONS (16)
  - Restless legs syndrome [Unknown]
  - Asthenia [Unknown]
  - Somnolence [Unknown]
  - Dehydration [Unknown]
  - Hypokalaemia [Unknown]
  - Diarrhoea [Recovering/Resolving]
  - Sleep disorder [Unknown]
  - Pain [Unknown]
  - Vomiting [Unknown]
  - Migraine [Unknown]
  - Abdominal discomfort [Not Recovered/Not Resolved]
  - Hepatic enzyme increased [Unknown]
  - Therapeutic product effect incomplete [Unknown]
  - Headache [Unknown]
  - Nausea [Unknown]
  - Hepatic enzyme decreased [Unknown]

NARRATIVE: CASE EVENT DATE: 202005
